FAERS Safety Report 14945148 (Version 1)
Quarter: 2018Q2

REPORT INFORMATION
  Report Type: Spontaneous
  Country: ES (occurrence: ES)
  Receive Date: 20180529
  Receipt Date: 20180529
  Transmission Date: 20180711
  Serious: Yes (Other)
  Sender: FDA-Public Use
  Company Number: ES-ASTRAZENECA-2018SE67316

PATIENT
  Age: 75 Year
  Sex: Female

DRUGS (1)
  1. FORXIGA [Suspect]
     Active Substance: DAPAGLIFLOZIN
     Indication: TYPE 2 DIABETES MELLITUS
     Route: 048
     Dates: start: 201803

REACTIONS (6)
  - Visual impairment [Unknown]
  - Headache [Unknown]
  - Hepatic pain [Unknown]
  - Vision blurred [Unknown]
  - Nasopharyngitis [Unknown]
  - Bone pain [Unknown]

NARRATIVE: CASE EVENT DATE: 201803
